FAERS Safety Report 8279562-2 (Version None)
Quarter: 2012Q2

REPORT INFORMATION
  Report Type: 
  Country: None (occurrence: None)
  Receive Date: 20120412
  Receipt Date: 20110901
  Transmission Date: 20120825
  Serious: No
  Sender: FDA-Public Use
  Company Number: US-ASTRAZENECA-2011SE53103

PATIENT
  Age: 36 Year
  Sex: Male
  Weight: 72.6 kg

DRUGS (2)
  1. PANTOPRACOLE [Concomitant]
  2. NEXIUM [Suspect]
     Indication: ABDOMINAL PAIN UPPER
     Route: 048
     Dates: start: 20110829

REACTIONS (5)
  - MUSCULAR WEAKNESS [None]
  - DIZZINESS [None]
  - SENSORY DISTURBANCE [None]
  - HEADACHE [None]
  - OFF LABEL USE [None]
